FAERS Safety Report 15673977 (Version 4)
Quarter: 2019Q1

REPORT INFORMATION
  Report Type: Report from Study
  Country: US (occurrence: US)
  Receive Date: 20181129
  Receipt Date: 20190212
  Transmission Date: 20190417
  Serious: No
  Sender: FDA-Public Use
  Company Number: PHEH2018US049696

PATIENT
  Sex: Female
  Weight: 82.55 kg

DRUGS (1)
  1. COSENTYX [Suspect]
     Active Substance: SECUKINUMAB
     Indication: PSORIASIS
     Dosage: 300 MG, QMO
     Route: 058
     Dates: start: 20170330

REACTIONS (6)
  - Drug effect incomplete [Unknown]
  - Fatigue [Unknown]
  - Malaise [Unknown]
  - Rhinorrhoea [Unknown]
  - Nasopharyngitis [Unknown]
  - Rash [Unknown]
